FAERS Safety Report 24772320 (Version 1)
Quarter: 2024Q4

REPORT INFORMATION
  Report Type: Spontaneous
  Country: US (occurrence: US)
  Receive Date: 20241224
  Receipt Date: 20241224
  Transmission Date: 20250114
  Serious: Yes (Hospitalization, Other)
  Sender: ABBVIE
  Company Number: ES-JNJFOC-20241241672

PATIENT
  Sex: Female

DRUGS (3)
  1. DEXAMETHASONE [Suspect]
     Active Substance: DEXAMETHASONE
     Indication: Product used for unknown indication
     Route: 065
     Dates: start: 2023
  2. DARZALEX [Suspect]
     Active Substance: DARATUMUMAB
     Indication: Product used for unknown indication
     Route: 065
  3. BORTEZOMIB [Suspect]
     Active Substance: BORTEZOMIB
     Indication: Product used for unknown indication
     Route: 065
     Dates: start: 2023

REACTIONS (6)
  - Septic shock [Unknown]
  - Human papillomavirus reactivation [Unknown]
  - Constipation [Recovered/Resolved]
  - Cytomegalovirus infection reactivation [Unknown]
  - Cough [Recovered/Resolved]
  - Neuropathy peripheral [Unknown]
